FAERS Safety Report 19878122 (Version 2)
Quarter: 2021Q4

REPORT INFORMATION
  Report Type: Spontaneous
  Country: US (occurrence: US)
  Receive Date: 20210923
  Receipt Date: 20211007
  Transmission Date: 20220303
  Serious: No
  Sender: FDA-Public Use
  Company Number: 2021A727043

PATIENT
  Age: 29711 Day
  Sex: Female
  Weight: 55.3 kg

DRUGS (3)
  1. FASENRA [Suspect]
     Active Substance: BENRALIZUMAB
     Indication: Chronic obstructive pulmonary disease
     Route: 058
     Dates: start: 20210913
  2. PULMICORT FLEXHALER [Suspect]
     Active Substance: BUDESONIDE
     Indication: Chronic obstructive pulmonary disease
     Route: 055
  3. NEXIUM [Suspect]
     Active Substance: ESOMEPRAZOLE MAGNESIUM
     Indication: Gastrooesophageal reflux disease
     Dosage: DAILY
     Route: 048

REACTIONS (9)
  - Tachycardia [Unknown]
  - Arrhythmia [Unknown]
  - Osteoporosis [Unknown]
  - Blood pressure abnormal [Recovered/Resolved with Sequelae]
  - Atrial fibrillation [Recovered/Resolved with Sequelae]
  - Headache [Unknown]
  - Injection site pain [Unknown]
  - Alopecia [Recovered/Resolved]
  - Heart rate increased [Recovered/Resolved with Sequelae]

NARRATIVE: CASE EVENT DATE: 20210913
